FAERS Safety Report 7677037-2 (Version None)
Quarter: 2011Q3

REPORT INFORMATION
  Report Type: 
  Country: None (occurrence: None)
  Receive Date: 20110811
  Receipt Date: 20110805
  Transmission Date: 20111222
  Serious: Yes (Death)
  Sender: FDA-Public Use
  Company Number: US-ROCHE-788954

PATIENT
  Sex: Female

DRUGS (11)
  1. IBANDRONATE SODIUM [Suspect]
     Indication: PAIN
     Route: 048
  2. LEVOTHYROXINE SODIUM [Concomitant]
     Route: 048
  3. LORAZEPAM [Concomitant]
     Dosage: AS NEEDED
     Route: 048
  4. NEXIUM [Concomitant]
     Route: 048
  5. HYDROCODONE BITARTRATE + ACETAMINOPHEN [Concomitant]
     Indication: PAIN
     Dosage: DRUG : HYDROCODONE ACETAMINOPHEN.LAST DOSE OF MEDICATION : 19 DECEMBER 2010. 1-2 CAP EVERY 4 HRS PRN
     Route: 048
     Dates: start: 20050101
  6. ALLEGRA [Concomitant]
     Dosage: ORALLY AT BEDTIME
     Route: 048
  7. SERTRALINE HYDROCHLORIDE [Concomitant]
     Route: 048
  8. ERGOCALCIFEROL [Concomitant]
     Dosage: VIT D2 1.25 MG, 50,000 UNITS
     Route: 048
  9. FLONASE [Concomitant]
     Dosage: DOSE : 0.05 MG/INH 2 SPRAY AT BEDTIME
  10. ATORVASTATIN [Concomitant]
     Indication: PAIN
     Dosage: LAST DOSE OF MEDICATION : 19 DECEMBER 2010
     Route: 048
  11. VALACYCLOVIR [Concomitant]
     Route: 048

REACTIONS (1)
  - ARNOLD-CHIARI MALFORMATION [None]
